FAERS Safety Report 7442004-0 (Version None)
Quarter: 2011Q2

REPORT INFORMATION
  Report Type: 
  Country: None (occurrence: None)
  Receive Date: 20110428
  Receipt Date: 20100824
  Transmission Date: 20111010
  Serious: No
  Sender: FDA-Public Use
  Company Number: US-ASTRAZENECA-2010SE39877

PATIENT
  Age: 46 Year
  Sex: Female

DRUGS (1)
  1. ZOMIG [Suspect]
     Indication: MIGRAINE
     Route: 048
     Dates: start: 20100817, end: 20100817

REACTIONS (4)
  - VOMITING [None]
  - NAUSEA [None]
  - DIZZINESS [None]
  - ABDOMINAL PAIN UPPER [None]
